FAERS Safety Report 6041908-3 (Version None)
Quarter: 2009Q1

REPORT INFORMATION
  Report Type: 
  Country: None (occurrence: None)
  Receive Date: 20090116
  Receipt Date: 20090115
  Transmission Date: 20090719
  Serious: Yes (Life-Threatening)
  Sender: FDA-Public Use
  Company Number: CA-ASTRAZENECA-2009UW01255

PATIENT
  Sex: Female

DRUGS (10)
  1. ARIMIDEX [Suspect]
     Dosage: 1 DOAGE FORM, EVERY ONE DAY
     Route: 048
  2. ALDACTONE [Concomitant]
  3. BLOOD WHOLE [Concomitant]
  4. CALCIUM [Concomitant]
  5. FERROUS SULFATE TAB [Concomitant]
  6. LASIX [Concomitant]
  7. LEVATE [Concomitant]
  8. NOVO VENLAFAXINE XR [Concomitant]
  9. TYLENOL (CAPLET) [Concomitant]
  10. HEPARIN SODIUM INJECTION [Concomitant]

REACTIONS (11)
  - ANOREXIA [None]
  - CARDIAC FAILURE [None]
  - CONSTIPATION [None]
  - DIARRHOEA [None]
  - EPISTAXIS [None]
  - HAEMOGLOBIN DECREASED [None]
  - MUSCULAR WEAKNESS [None]
  - NAUSEA [None]
  - OEDEMA [None]
  - PULMONARY OEDEMA [None]
  - WEIGHT DECREASED [None]
